FAERS Safety Report 5814058-6 (Version None)
Quarter: 2008Q3

REPORT INFORMATION
  Report Type: 
  Country: None (occurrence: None)
  Receive Date: 20080717
  Receipt Date: 20080714
  Transmission Date: 20090109
  Serious: Yes (Life-Threatening)
  Sender: FDA-Public Use
  Company Number: JP-BOEHRINGER INGELHEIM GMBH, GERMANY-2008-BP-10849NB

PATIENT
  Sex: Male

DRUGS (9)
  1. MICARDIS [Suspect]
     Indication: HYPERTENSION
     Route: 048
     Dates: start: 20080425, end: 20080616
  2. AMLODIPINE [Suspect]
     Indication: HYPERTENSION
     Route: 048
     Dates: start: 20080425, end: 20080616
  3. URIEF [Concomitant]
     Route: 048
     Dates: end: 20080616
  4. TOLTERODINE TARTRATE [Concomitant]
     Route: 048
     Dates: end: 20080616
  5. SEROQUEL [Concomitant]
     Route: 048
     Dates: end: 20080616
  6. TEGRETOL [Concomitant]
     Route: 048
     Dates: end: 20080616
  7. MAGNESIUM OXIDE [Concomitant]
     Route: 048
     Dates: end: 20080616
  8. ZYPREXA [Concomitant]
     Route: 048
     Dates: end: 20080616
  9. HANGE-KOBOKU-TO [Concomitant]
     Route: 048
     Dates: end: 20080616

REACTIONS (1)
  - RENAL FAILURE ACUTE [None]
